FAERS Safety Report 8000131-3 (Version None)
Quarter: 2011Q4

REPORT INFORMATION
  Report Type: 
  Country: None (occurrence: None)
  Receive Date: 20111220
  Receipt Date: 20111220
  Transmission Date: 20120403
  Serious: Yes (Other)
  Sender: FDA-Public Use
  Company Number: None

PATIENT
  Age: 58 Year
  Sex: Female
  Weight: 71.6683 kg

DRUGS (1)
  1. CHORIONIC GONADTROPIN [Suspect]
     Indication: WEIGHT CONTROL
     Dosage: 2 DROPS 2X DAILY ORAL
     Route: 048
     Dates: start: 20111012, end: 20111029

REACTIONS (4)
  - ULTRASOUND SCAN ABNORMAL [None]
  - ABDOMINAL PAIN LOWER [None]
  - COMPUTERISED TOMOGRAM ABNORMAL [None]
  - PELVIC CONGESTION [None]
